FAERS Safety Report 9271248 (Version 1)
Quarter: 2013Q2

REPORT INFORMATION
  Report Type: Spontaneous
  Country: FR (occurrence: FR)
  Receive Date: 20130506
  Receipt Date: 20130506
  Transmission Date: 20140414
  Serious: Yes (Hospitalization)
  Sender: FDA-Public Use
  Company Number: FR-009507513-1304FRA016045

PATIENT
  Age: 23 Year
  Sex: Female

DRUGS (4)
  1. NEXPLANON [Suspect]
     Indication: PRODUCT USED FOR UNKNOWN INDICATION
     Dosage: UNK
     Route: 059
     Dates: start: 20130321
  2. SPASFON [Interacting]
     Indication: PRODUCT USED FOR UNKNOWN INDICATION
  3. MORPHINE [Interacting]
     Indication: PRODUCT USED FOR UNKNOWN INDICATION
  4. ANALGESIC (UNSPECIFIED) [Interacting]
     Indication: PRODUCT USED FOR UNKNOWN INDICATION

REACTIONS (5)
  - Pancreatitis acute [Unknown]
  - Cholelithiasis [Unknown]
  - Haemorrhage [Not Recovered/Not Resolved]
  - Drug interaction [Unknown]
  - Amenorrhoea [Recovered/Resolved]
